FAERS Safety Report 18038344 (Version 1)
Quarter: 2020Q3

REPORT INFORMATION
  Report Type: Spontaneous
  Country: US (occurrence: US)
  Receive Date: 20200718
  Receipt Date: 20200718
  Transmission Date: 20201103
  Serious: Yes (Life-Threatening, Hospitalization)
  Sender: FDA-Public Use
  Company Number: US-GLAND PHARMA LIMITED-2087487

PATIENT
  Age: 71 Year
  Sex: Female

DRUGS (1)
  1. TRANEXAMIC ACID. [Suspect]
     Active Substance: TRANEXAMIC ACID
     Indication: KNEE ARTHROPLASTY
     Route: 037

REACTIONS (7)
  - Accidental exposure to product [Unknown]
  - Incorrect route of product administration [Unknown]
  - Myoclonus [Recovered/Resolved]
  - Status epilepticus [Recovered/Resolved]
  - Cognitive disorder [Recovered/Resolved]
  - Gait disturbance [Recovered/Resolved]
  - Pneumocephalus [Recovered/Resolved]
